FAERS Safety Report 22598168 (Version 1)
Quarter: 2023Q2

REPORT INFORMATION
  Report Type: Spontaneous
  Country: US (occurrence: None)
  Receive Date: 20230614
  Receipt Date: 20230614
  Transmission Date: 20230722
  Serious: No
  Sender: FDA-Public Use
  Company Number: US-MDD US Operations-MDD202304-001402

PATIENT
  Age: 77 Year
  Sex: Female

DRUGS (7)
  1. APOKYN [Suspect]
     Active Substance: APOMORPHINE HYDROCHLORIDE
     Indication: Parkinson^s disease
     Route: 058
     Dates: start: 20230404
  2. METFORMIN [Concomitant]
     Active Substance: METFORMIN HYDROCHLORIDE
     Dosage: NOT PROVIDED
  3. CLONIDINE [Concomitant]
     Active Substance: CLONIDINE
     Dosage: NOT PROVIDED
  4. ATORVASTATIN [Concomitant]
     Active Substance: ATORVASTATIN
     Dosage: NOT PROVIDED
  5. PLAVIX [Concomitant]
     Active Substance: CLOPIDOGREL BISULFATE
     Dosage: NOT PROVIDED
  6. METOPROLOL [Concomitant]
     Active Substance: METOPROLOL
     Dosage: NOT PROVIDED
  7. CARBIDOPA\LEVODOPA [Concomitant]
     Active Substance: CARBIDOPA\LEVODOPA
     Dosage: NOT PROVIDED

REACTIONS (3)
  - Pollakiuria [Recovered/Resolved]
  - Headache [Recovered/Resolved]
  - Somnolence [Recovered/Resolved]

NARRATIVE: CASE EVENT DATE: 20230404
